FAERS Safety Report 21789126 (Version 1)
Quarter: 2022Q4

REPORT INFORMATION
  Report Type: Spontaneous
  Country: CN (occurrence: CN)
  Receive Date: 20221228
  Receipt Date: 20221228
  Transmission Date: 20230113
  Serious: Yes (Other)
  Sender: FDA-Public Use
  Company Number: None

PATIENT
  Age: 69 Year
  Sex: Female
  Weight: 49 kg

DRUGS (6)
  1. CYCLOPHOSPHAMIDE [Suspect]
     Active Substance: CYCLOPHOSPHAMIDE
     Indication: Breast cancer female
     Dosage: 0.85 G, QD (DOSAGE FORM: INJECTION), DILUTED WITH 0.9% SODIUM CHLORIDE (100 ML), AC SEQUENTIAL TH RE
     Route: 041
     Dates: start: 20221021, end: 20221021
  2. SODIUM CHLORIDE [Suspect]
     Active Substance: SODIUM CHLORIDE
     Indication: Medication dilution
     Dosage: 100 ML, QD (DOSAGE FORM: INJECTION), USED TO DILUTE CYCLOPHOSPHAMIDE (0.85 G), AC SEQUENTIAL TH REGI
     Route: 041
     Dates: start: 20221021, end: 20221021
  3. SODIUM CHLORIDE [Suspect]
     Active Substance: SODIUM CHLORIDE
     Dosage: 100 ML, QD (DOSAGE FORM: INJECTION), USED TO DILUTE EPIRUBICIN (125 MG), AC SEQUENTIAL TH REGIMEN, F
     Route: 041
     Dates: start: 20221021, end: 20221021
  4. EPIRUBICIN [Suspect]
     Active Substance: EPIRUBICIN
     Indication: Breast cancer female
     Dosage: 125 MG, QD, DILUTED WITH 0.9% SODIUM CHLORIDE (100 ML), AC SEQUENTIAL TH REGIMEN, FIRST CYCLE OF CHE
     Route: 041
     Dates: start: 20221021, end: 20221021
  5. PACLITAXEL [Suspect]
     Active Substance: PACLITAXEL
     Indication: Breast cancer female
     Dosage: AC SEQUENTIAL TH REGIMEN, FIRST CYCLE OF CHEMOTHERAPY
     Route: 065
     Dates: start: 20221021
  6. TRASTUZUMAB [Suspect]
     Active Substance: TRASTUZUMAB
     Indication: Breast cancer female
     Dosage: AC SEQUENTIAL TH REGIMEN, FIRST CYCLE OF CHEMOTHERAPY
     Route: 065
     Dates: start: 20221021

REACTIONS (1)
  - Myelosuppression [Recovering/Resolving]

NARRATIVE: CASE EVENT DATE: 20221031
